FAERS Safety Report 5451724-9 (Version None)
Quarter: 2007Q3

REPORT INFORMATION
  Report Type: 
  Country: None (occurrence: None)
  Receive Date: 20070913
  Receipt Date: 20070903
  Transmission Date: 20080115
  Serious: Yes (Hospitalization, Other)
  Sender: FDA-Public Use
  Company Number: DE-PFIZER INC-2007073251

PATIENT
  Age: 64 Year
  Sex: Female

DRUGS (1)
  1. SU-011,248 [Suspect]
     Indication: GLIOBLASTOMA
     Dosage: DAILY DOSE:50MG
     Route: 048

REACTIONS (2)
  - PNEUMONIA [None]
  - THROMBOCYTOPENIA [None]
